FAERS Safety Report 4813489-0 (Version None)
Quarter: 2005Q4

REPORT INFORMATION
  Report Type: 
  Country: None (occurrence: None)
  Receive Date: 20051028
  Receipt Date: 20050216
  Transmission Date: 20060501
  Serious: Yes (Hospitalization)
  Sender: FDA-Public Use
  Company Number: US-GLAXOSMITHKLINE-A0545948A

PATIENT
  Age: 79 Year
  Sex: Female

DRUGS (8)
  1. ADVAIR DISKUS 100/50 [Suspect]
     Indication: CHRONIC OBSTRUCTIVE PULMONARY DISEASE
     Dosage: 1PUFF TWICE PER DAY
     Route: 055
  2. SPIRIVA [Concomitant]
  3. FLONASE [Concomitant]
  4. DIGOXIN [Concomitant]
  5. LISINOPRIL [Concomitant]
  6. CHLORPHENIRAMINE MALEATE [Concomitant]
  7. PREDNISONE [Concomitant]
  8. NASONEX [Concomitant]

REACTIONS (3)
  - DYSPNOEA EXACERBATED [None]
  - HYPERTENSION [None]
  - PNEUMONIA [None]
